FAERS Safety Report 6301387-5 (Version None)
Quarter: 2009Q3

REPORT INFORMATION
  Report Type: 
  Country: None (occurrence: None)
  Receive Date: 20090805
  Receipt Date: 20090805
  Transmission Date: 20100115
  Serious: Yes (Other)
  Sender: FDA-Public Use
  Company Number: None

PATIENT
  Age: 58 Year
  Sex: Female
  Weight: 71.6683 kg

DRUGS (2)
  1. LINEZOLID [Suspect]
     Indication: KIDNEY INFECTION
     Dosage: 1 TABLET 12 HOURS PO
     Route: 048
     Dates: start: 20090724, end: 20090804
  2. PHENAZOPYRIDINE HCL TAB [Concomitant]

REACTIONS (5)
  - ABNORMAL BEHAVIOUR [None]
  - CHEST PAIN [None]
  - DIZZINESS [None]
  - DYSPNOEA [None]
  - VISION BLURRED [None]
